FAERS Safety Report 15730988 (Version 1)
Quarter: 2018Q4

REPORT INFORMATION
  Report Type: Report from Study
  Country: PK (occurrence: PK)
  Receive Date: 20181217
  Receipt Date: 20181217
  Transmission Date: 20190205
  Serious: Yes (Other)
  Sender: FDA-Public Use
  Company Number: PHHY2018PK184248

PATIENT
  Age: 56 Year
  Sex: Female

DRUGS (1)
  1. EXFORGE [Suspect]
     Active Substance: AMLODIPINE BESYLATE\VALSARTAN
     Indication: BLOOD PRESSURE INCREASED
     Dosage: 1 DF, QD (5 MG AMLODIPINE, 80 MG VALSARTAN)
     Route: 048
     Dates: start: 20180829

REACTIONS (5)
  - Polyuria [Unknown]
  - Fatigue [Unknown]
  - Diabetes mellitus [Recovering/Resolving]
  - Hyperphagia [Unknown]
  - Confusional state [Unknown]

NARRATIVE: CASE EVENT DATE: 20181110
